FAERS Safety Report 10968282 (Version 2)
Quarter: 2015Q2

REPORT INFORMATION
  Report Type: Spontaneous
  Country: JP (occurrence: JP)
  Receive Date: 20150330
  Receipt Date: 20150427
  Transmission Date: 20150821
  Serious: Yes (Life-Threatening)
  Sender: FDA-Public Use
  Company Number: JP-PFIZER INC-2015111099

PATIENT
  Age: 73 Year
  Sex: Male
  Weight: 55.8 kg

DRUGS (9)
  1. SOLU-CORTEF [Suspect]
     Active Substance: HYDROCORTISONE SODIUM SUCCINATE
     Indication: PNEUMONIA
     Dosage: 100 MG, 3X/DAY
     Dates: start: 20150321, end: 20150322
  2. HERBESSER [Concomitant]
     Active Substance: DILTIAZEM HYDROCHLORIDE
     Dosage: 100 MG, 1X/DAY
     Route: 048
  3. ITOROL [Concomitant]
     Active Substance: ISOSORBIDE MONONITRATE
     Dosage: 20 MG, 2X/DAY
     Route: 048
  4. SOLU-CORTEF [Suspect]
     Active Substance: HYDROCORTISONE SODIUM SUCCINATE
     Indication: HYPOPITUITARISM
     Dosage: 50 MG, 2X/DAY
     Route: 065
     Dates: start: 20150320, end: 20150320
  5. BAYASPIRIN [Concomitant]
     Active Substance: ASPIRIN
     Dosage: 100 MG, 1X/DAY
     Route: 048
  6. SOLU-CORTEF [Suspect]
     Active Substance: HYDROCORTISONE SODIUM SUCCINATE
     Dosage: 50 MG, 3X/DAY
     Dates: start: 20150323, end: 20150328
  7. DESMOPRESSIN [Suspect]
     Active Substance: DESMOPRESSIN
     Indication: DIABETES INSIPIDUS
     Dosage: 2.5 ?G, 1X/DAY
     Route: 045
     Dates: start: 20150322, end: 20150322
  8. DESMOPRESSIN [Suspect]
     Active Substance: DESMOPRESSIN
     Dosage: 2.5 ?G, 2X/DAY
     Route: 045
     Dates: start: 20150323
  9. ARTIST [Concomitant]
     Active Substance: CARVEDILOL
     Dosage: 10 MG, 2X/DAY
     Route: 048

REACTIONS (2)
  - Blood potassium decreased [Unknown]
  - Hyponatraemia [Recovering/Resolving]

NARRATIVE: CASE EVENT DATE: 20150325
